FAERS Safety Report 7910357-2 (Version None)
Quarter: 2011Q4

REPORT INFORMATION
  Report Type: 
  Country: None (occurrence: None)
  Receive Date: 20111111
  Receipt Date: 20111108
  Transmission Date: 20120403
  Serious: Yes (Other)
  Sender: FDA-Public Use
  Company Number: US-JNJFOC-20111103478

PATIENT
  Sex: Male

DRUGS (2)
  1. IMODIUM MULTI-SYMPTOM RELIEF [Suspect]
     Route: 048
  2. IMODIUM MULTI-SYMPTOM RELIEF [Suspect]
     Indication: DIARRHOEA
     Route: 048
     Dates: start: 20111106

REACTIONS (4)
  - EXPIRED DRUG ADMINISTERED [None]
  - DRUG INEFFECTIVE [None]
  - HAEMATOCHEZIA [None]
  - TABLET PHYSICAL ISSUE [None]
